FAERS Safety Report 7392196-7 (Version None)
Quarter: 2011Q2

REPORT INFORMATION
  Report Type: 
  Country: None (occurrence: None)
  Receive Date: 20110404
  Receipt Date: 20110329
  Transmission Date: 20111010
  Serious: Yes (Other)
  Sender: FDA-Public Use
  Company Number: B0709740A

PATIENT
  Sex: Male
  Weight: 38 kg

DRUGS (18)
  1. ALKERAN [Suspect]
     Indication: STEM CELL TRANSPLANT
     Dosage: 90MG PER DAY
     Route: 042
     Dates: start: 20091209, end: 20091210
  2. URSO 250 [Concomitant]
     Dosage: 360MG PER DAY
     Route: 048
     Dates: start: 20091209, end: 20091213
  3. RAMELTEON [Concomitant]
     Route: 042
     Dates: start: 20091212, end: 20091220
  4. BIOLACTIS [Concomitant]
     Dosage: 3G PER DAY
     Route: 048
     Dates: start: 20091214, end: 20091223
  5. KYTRIL [Concomitant]
     Dosage: 6MG PER DAY
     Route: 042
     Dates: start: 20091209, end: 20091218
  6. ATARAX [Concomitant]
     Dosage: 25MG PER DAY
     Dates: start: 20091209, end: 20091229
  7. FUNGUARD [Concomitant]
     Route: 042
     Dates: start: 20091216, end: 20100104
  8. ALKERAN [Suspect]
     Dosage: 90MG PER DAY
     Route: 042
     Dates: start: 20091216, end: 20091217
  9. THIOTEPA [Suspect]
     Indication: STEM CELL TRANSPLANT
     Dosage: 250MG PER DAY
     Dates: start: 20091209, end: 20091210
  10. MEYLON [Concomitant]
     Route: 042
     Dates: start: 20091208, end: 20091219
  11. SOLDEM 3A [Concomitant]
     Dosage: 200ML PER DAY
     Route: 042
     Dates: start: 20091209, end: 20091217
  12. THIOTEPA [Suspect]
     Dosage: 250MG PER DAY
     Dates: start: 20091216, end: 20091217
  13. GASTER [Concomitant]
     Route: 042
     Dates: start: 20091214, end: 20091221
  14. VOLVIX [Concomitant]
     Dosage: 1IUAX PER DAY
     Route: 042
     Dates: start: 20091208, end: 20100129
  15. SOLDEM [Concomitant]
     Route: 042
     Dates: start: 20091208, end: 20100104
  16. URSO 250 [Concomitant]
     Dosage: 400MG PER DAY
     Route: 048
     Dates: start: 20091213, end: 20110202
  17. FULCALIQ [Concomitant]
     Route: 042
     Dates: start: 20091208, end: 20100129
  18. HEPARIN SODIUM [Concomitant]
     Dates: start: 20091208, end: 20100104

REACTIONS (1)
  - SEPSIS [None]
